FAERS Safety Report 7738084-5 (Version None)
Quarter: 2011Q3

REPORT INFORMATION
  Report Type: 
  Country: None (occurrence: None)
  Receive Date: 20110906
  Receipt Date: 20110822
  Transmission Date: 20111222
  Serious: Yes (Death)
  Sender: FDA-Public Use
  Company Number: JP-ACCORD-010461

PATIENT

DRUGS (1)
  1. GEMCITABINE [Suspect]
     Indication: PANCREATIC CARCINOMA

REACTIONS (3)
  - TUBULOINTERSTITIAL NEPHRITIS [None]
  - RENAL FAILURE ACUTE [None]
  - RENAL INJURY [None]
